FAERS Safety Report 7744661-8 (Version None)
Quarter: 2011Q3

REPORT INFORMATION
  Report Type: 
  Country: None (occurrence: None)
  Receive Date: 20110912
  Receipt Date: 20110901
  Transmission Date: 20111222
  Serious: Yes (Hospitalization)
  Sender: FDA-Public Use
  Company Number: PHHY2011US79752

PATIENT
  Age: 43 Year
  Sex: Male

DRUGS (7)
  1. RISPERDAL [Interacting]
     Dosage: 4 MG, QD
     Route: 048
  2. BUPROPION HCL [Concomitant]
     Dosage: 150 MG, QD
  3. RISPERDAL [Interacting]
     Indication: SCHIZOAFFECTIVE DISORDER
     Dosage: 37.5 MG, BIW
  4. RISPERDAL [Interacting]
     Dosage: 1 MG, BID
  5. TERBINAFINE HCL [Suspect]
  6. CLONAZEPAM [Concomitant]
     Dosage: 0.5 MG, QD
  7. VALPROIC ACID [Concomitant]
     Dosage: 500 MG, BID

REACTIONS (6)
  - DRUG INTERACTION [None]
  - HALLUCINATION, AUDITORY [None]
  - EATING DISORDER [None]
  - PSYCHIATRIC DECOMPENSATION [None]
  - PSYCHOMOTOR HYPERACTIVITY [None]
  - COGNITIVE DISORDER [None]
